FAERS Safety Report 23143976 (Version 1)
Quarter: 2023Q4

REPORT INFORMATION
  Report Type: Spontaneous
  Country: US (occurrence: US)
  Receive Date: 20231103
  Receipt Date: 20231103
  Transmission Date: 20240110
  Serious: Yes (Other)
  Sender: FDA-Public Use
  Company Number: US-TEVA-2023-US-2940367

PATIENT
  Sex: Male

DRUGS (6)
  1. PROAIR RESPICLICK [Suspect]
     Active Substance: ALBUTEROL SULFATE
     Indication: Product used for unknown indication
     Dosage: 90 MCG/DOSE
     Route: 065
  2. PROAIR RESPICLICK [Suspect]
     Active Substance: ALBUTEROL SULFATE
  3. PROAIR RESPICLICK [Suspect]
     Active Substance: ALBUTEROL SULFATE
  4. PROAIR HFA [Interacting]
     Active Substance: ALBUTEROL SULFATE
     Indication: Product used for unknown indication
     Route: 065
  5. PROAIR HFA [Interacting]
     Active Substance: ALBUTEROL SULFATE
  6. PROAIR HFA [Interacting]
     Active Substance: ALBUTEROL SULFATE

REACTIONS (4)
  - Pulmonary congestion [Unknown]
  - Drug ineffective [Unknown]
  - Product use issue [Unknown]
  - Device delivery system issue [Unknown]
